FAERS Safety Report 6397095-5 (Version None)
Quarter: 2009Q4

REPORT INFORMATION
  Report Type: 
  Country: None (occurrence: None)
  Receive Date: 20091007
  Receipt Date: 20081209
  Transmission Date: 20100525
  Serious: Yes (Other)
  Sender: FDA-Public Use
  Company Number: 1713747-2009-000011

PATIENT
  Sex: Male

DRUGS (1)
  1. DELFLEX W/ DEXTROSE 2.5% LOW MAGNESIUM LOW CALCIUM [Suspect]
     Indication: RENAL FAILURE CHRONIC
     Dosage: INTRAPERITONEALLY
     Route: 033

REACTIONS (1)
  - PERITONITIS [None]
